APPROVED DRUG PRODUCT: BACLOFEN
Active Ingredient: BACLOFEN
Strength: 5MG
Dosage Form/Route: TABLET;ORAL
Application: A214374 | Product #001 | TE Code: AB
Applicant: RISING PHARMA HOLDINGS INC
Approved: Mar 5, 2021 | RLD: No | RS: No | Type: RX